FAERS Safety Report 7229427-X (Version None)
Quarter: 2011Q1

REPORT INFORMATION
  Report Type: 
  Country: None (occurrence: None)
  Receive Date: 20110117
  Receipt Date: 20110110
  Transmission Date: 20110831
  Serious: Yes (Death, Hospitalization)
  Sender: FDA-Public Use
  Company Number: B0680488A

PATIENT
  Age: 54 Year
  Sex: Male

DRUGS (18)
  1. DULOXETIME HYDROCHLORIDE [Concomitant]
     Dates: start: 20100615
  2. DIPHENOXYLATE HCL + ATROPINE SULFATE [Concomitant]
     Dates: start: 20091207
  3. MARAVIROC [Suspect]
     Indication: HIV INFECTION
     Dosage: 600MG TWICE PER DAY
     Dates: start: 20100824
  4. AMITRIPTYLINE [Concomitant]
     Dates: start: 20100824
  5. PROCHLORPERAZINE [Concomitant]
     Dates: start: 20100223
  6. ZOLPIDEM [Concomitant]
     Dates: start: 20091207
  7. OMEPRAZOLE [Concomitant]
     Dates: start: 20100811
  8. MOMETASONE FUROATE [Concomitant]
     Dates: start: 20100223
  9. AMLODIPINE [Concomitant]
     Dates: start: 20091207
  10. TRUVADA [Concomitant]
     Dosage: 1TAB PER DAY
     Dates: start: 20091207
  11. ETRAVIRINE [Concomitant]
     Dates: start: 20091207
  12. HYDROCODONE BITARTRATE + ACETAMINOPHEN [Concomitant]
     Dates: start: 20100513
  13. DRONABINOL [Concomitant]
     Dates: start: 20091207
  14. INTELENCE [Concomitant]
     Dosage: 400MG PER DAY
     Dates: start: 20091207
  15. IBUPROFEN [Concomitant]
     Dates: start: 20100223
  16. ALBUTEROL [Concomitant]
     Dates: start: 20100513
  17. RANITIDINE [Concomitant]
     Dates: start: 20100223
  18. SUMATRIPTAN [Concomitant]
     Dates: start: 20091207

REACTIONS (3)
  - REFUSAL OF TREATMENT BY PATIENT [None]
  - PNEUMOTHORAX [None]
  - LYMPHOMA [None]
